FAERS Safety Report 7475317-7 (Version None)
Quarter: 2011Q2

REPORT INFORMATION
  Report Type: 
  Country: None (occurrence: None)
  Receive Date: 20110512
  Receipt Date: 20110504
  Transmission Date: 20111010
  Serious: Yes (Other)
  Sender: FDA-Public Use
  Company Number: GB-PFIZER INC-GB-WYE-G01555808

PATIENT
  Age: 2 Year
  Sex: Male

DRUGS (5)
  1. IBUPROFEN [Suspect]
     Indication: JUVENILE ARTHRITIS
     Dosage: 200 MG, 2X/DAY
     Route: 048
     Dates: start: 20040101
  2. METHOTREXATE SODIUM [Suspect]
     Indication: JUVENILE ARTHRITIS
     Dosage: 7.5 MG, WEEKLY
     Route: 058
     Dates: start: 20030801, end: 20040129
  3. IRON [Concomitant]
     Dosage: 5 ML, 3X/DAY
     Route: 065
     Dates: start: 20040801
  4. TRIAMCINOLONE [Concomitant]
     Dosage: UNK
     Route: 065
     Dates: start: 20040201
  5. PIROXICAM [Suspect]
     Dosage: UNK
     Route: 048
     Dates: start: 20040101

REACTIONS (2)
  - SPONDYLITIS [None]
  - ALANINE AMINOTRANSFERASE INCREASED [None]
